FAERS Safety Report 20116106 (Version 2)
Quarter: 2022Q2

REPORT INFORMATION
  Report Type: Spontaneous
  Country: US (occurrence: None)
  Receive Date: 20211126
  Receipt Date: 20220428
  Transmission Date: 20220721
  Serious: Yes (Other)
  Sender: FDA-Public Use
  Company Number: US-ROCHE-2965273

PATIENT
  Sex: Female

DRUGS (1)
  1. OCREVUS [Suspect]
     Active Substance: OCRELIZUMAB
     Indication: Multiple sclerosis
     Dosage: 600 MG EVERY SIX MONTHS?DEC/2021
     Route: 042
     Dates: start: 201912

REACTIONS (4)
  - Multiple sclerosis relapse [Unknown]
  - Lethargy [Unknown]
  - Fatigue [Unknown]
  - Balance disorder [Unknown]
